FAERS Safety Report 25526929 (Version 4)
Quarter: 2025Q4

REPORT INFORMATION
  Report Type: Report from Study
  Country: JP (occurrence: JP)
  Receive Date: 20250707
  Receipt Date: 20251014
  Transmission Date: 20260117
  Serious: Yes (Other)
  Sender: ABBVIE
  Company Number: JP-JNJFOC-20250416478

PATIENT
  Age: 72 Year
  Sex: Male

DRUGS (6)
  1. IMBRUVICA [Suspect]
     Active Substance: IBRUTINIB
     Indication: Mantle cell lymphoma
     Dosage: FORM STRENGTH: 140 MG
     Route: 048
     Dates: start: 20250318, end: 20250727
  2. IMBRUVICA [Suspect]
     Active Substance: IBRUTINIB
     Indication: Mantle cell lymphoma
     Dosage: FORM STRENGTH: 140 MG
     Route: 048
     Dates: start: 20250728
  3. ESOMEPRAZOLE [Concomitant]
     Active Substance: ESOMEPRAZOLE
     Indication: Product used for unknown indication
     Dosage: DOSE UNKNOWN
     Route: 048
  4. PREGABALIN [Concomitant]
     Active Substance: PREGABALIN
     Indication: Hypoaesthesia
     Dosage: DOSE UNKNOWN
     Route: 048
  5. VALACYCLOVIR HYDROCHLORIDE [Concomitant]
     Active Substance: VALACYCLOVIR HYDROCHLORIDE
     Indication: Prophylaxis
     Dosage: MONDAY/WEDNESDAY/FRIDAY
     Route: 048
     Dates: start: 20250526
  6. SULFAMETHOXAZOLE\TRIMETHOPRIM [Concomitant]
     Active Substance: SULFAMETHOXAZOLE\TRIMETHOPRIM
     Indication: Prophylaxis
     Dosage: MONDAY/WEDNESDAY/FRIDAY
     Route: 048
     Dates: start: 20250526

REACTIONS (23)
  - Internal haemorrhage [Recovering/Resolving]
  - Throat irritation [Recovered/Resolved]
  - Back pain [Recovered/Resolved]
  - Headache [Recovering/Resolving]
  - Sputum retention [Not Recovered/Not Resolved]
  - Cough [Recovered/Resolved]
  - Pain in jaw [Recovering/Resolving]
  - Skin exfoliation [Unknown]
  - Seasonal allergy [Recovered/Resolved]
  - Tumour marker decreased [Recovering/Resolving]
  - Rash [Unknown]
  - Fatigue [Not Recovered/Not Resolved]
  - Myalgia [Not Recovered/Not Resolved]
  - Muscle spasms [Recovering/Resolving]
  - Muscle spasms [Recovering/Resolving]
  - Decreased immune responsiveness [Not Recovered/Not Resolved]
  - Heat illness [Recovered/Resolved]
  - Pyrexia [Recovered/Resolved]
  - Induration [Recovering/Resolving]
  - Renal function test abnormal [Not Recovered/Not Resolved]
  - Hypoaesthesia [Not Recovered/Not Resolved]
  - Urticaria [Not Recovered/Not Resolved]
  - Trichotillomania [Not Recovered/Not Resolved]

NARRATIVE: CASE EVENT DATE: 20250101
